FAERS Safety Report 9364882 (Version 1)
Quarter: 2013Q2

REPORT INFORMATION
  Report Type: Spontaneous
  Country: US (occurrence: US)
  Receive Date: 20130624
  Receipt Date: 20130624
  Transmission Date: 20140414
  Serious: Yes (Hospitalization, Disabling, Other)
  Sender: FDA-Public Use
  Company Number: US-009507513-1205USA02096

PATIENT
  Sex: Female

DRUGS (3)
  1. FOSAMAX [Suspect]
     Indication: OSTEOPOROSIS
     Dosage: 70 MG, UNK
     Route: 048
     Dates: start: 20010703, end: 200711
  2. BONIVA [Suspect]
     Indication: OSTEOPOROSIS
     Dosage: UNK
     Route: 048
     Dates: start: 200712
  3. NORVASC [Concomitant]
     Indication: HYPERTENSION
     Dosage: 2.5 MG, QD

REACTIONS (39)
  - Femur fracture [Recovering/Resolving]
  - Intramedullary rod insertion [Recovered/Resolved]
  - Osteoporosis [Not Recovered/Not Resolved]
  - Stress fracture [Not Recovered/Not Resolved]
  - Low turnover osteopathy [Not Recovered/Not Resolved]
  - Pulmonary embolism [Unknown]
  - Incision site infection [Unknown]
  - Knee arthroplasty [Unknown]
  - Cardiac pacemaker insertion [Unknown]
  - Femur fracture [Unknown]
  - Clostridium difficile infection [Unknown]
  - Clostridium difficile infection [Unknown]
  - Cellulitis [Unknown]
  - Skin cancer [Unknown]
  - Femur fracture [Recovering/Resolving]
  - Femur fracture [Unknown]
  - Incision site infection [Unknown]
  - Rib fracture [Unknown]
  - Rib fracture [Unknown]
  - Fall [Unknown]
  - Fall [Unknown]
  - Adverse event [Unknown]
  - Adverse event [Unknown]
  - Non-alcoholic steatohepatitis [Unknown]
  - Medical device discomfort [Unknown]
  - Muscle injury [Unknown]
  - Muscular weakness [Unknown]
  - Muscular weakness [Unknown]
  - Rib fracture [Recovering/Resolving]
  - Sick sinus syndrome [Unknown]
  - Atrioventricular block second degree [Unknown]
  - Cardiac murmur [Unknown]
  - Hypotension [Unknown]
  - Hypokalaemia [Unknown]
  - Appendicectomy [Unknown]
  - Oophorectomy [Unknown]
  - Polymyalgia rheumatica [Unknown]
  - Endometriosis [Unknown]
  - Periarthritis [Unknown]
